FAERS Safety Report 13046088 (Version 1)
Quarter: 2016Q4

REPORT INFORMATION
  Report Type: Spontaneous
  Country: US (occurrence: US)
  Receive Date: 20161220
  Receipt Date: 20161220
  Transmission Date: 20170207
  Serious: Yes (Other)
  Sender: FDA-Public Use
  Company Number: US-TAIHO ONCOLOGY INC-EU-2016-03141

PATIENT
  Sex: Female

DRUGS (5)
  1. POTASSIUM CHLORIDE. [Concomitant]
     Active Substance: POTASSIUM CHLORIDE
     Dosage: NI
  2. EMLA [Concomitant]
     Active Substance: LIDOCAINE\PRILOCAINE
  3. GABAPENTIN. [Concomitant]
     Active Substance: GABAPENTIN
     Dosage: NI
  4. MAGNESIUM [Concomitant]
     Active Substance: MAGNESIUM
     Dosage: NI
  5. LONSURF [Suspect]
     Active Substance: TIPIRACIL HYDROCHLORIDE\TRIFLURIDINE
     Indication: COLON CANCER
     Route: 048
     Dates: start: 20160316

REACTIONS (7)
  - Cholelithiasis [Unknown]
  - Malaise [Unknown]
  - Intestinal obstruction [Unknown]
  - Disease progression [Unknown]
  - Constipation [Unknown]
  - Abdominal distension [Unknown]
  - Myalgia [Unknown]

NARRATIVE: CASE EVENT DATE: 2016
